FAERS Safety Report 9617474 (Version 1)
Quarter: 2013Q4

REPORT INFORMATION
  Report Type: Spontaneous
  Country: US (occurrence: None)
  Receive Date: 20131009
  Receipt Date: 20131009
  Transmission Date: 20140711
  Serious: Yes (Other)
  Sender: FDA-Public Use
  Company Number: 2013AP008408

PATIENT
  Sex: Female

DRUGS (8)
  1. IBANDRONATE SODIUM [Suspect]
     Indication: OSTEOPENIA
     Dates: start: 1998, end: 2011
  2. ALENDRONATE SODIUM TABLETS [Suspect]
     Indication: OSTEOPOROSIS
     Dates: start: 1998, end: 2011
  3. ALENDRONATE SODIUM TABLETS [Suspect]
     Indication: OSTEOPENIA
     Dates: start: 1998, end: 2011
  4. IBANDRONATE SODIUM [Suspect]
     Indication: OSTEOPOROSIS
     Dates: start: 1998, end: 2011
  5. IBANDRONATE SODIUM [Suspect]
     Indication: OSTEOPENIA
     Dates: start: 1998, end: 2011
  6. ALENDRONATE SODIUM [Suspect]
     Indication: OSTEOPOROSIS
     Dates: start: 1998, end: 2011
  7. ALENDRONATE SODIUM [Suspect]
     Indication: OSTEOPENIA
     Dates: start: 1998, end: 2011
  8. IBANDRONATE SODIUM [Suspect]
     Indication: OSTEOPOROSIS
     Dates: start: 1998, end: 2011

REACTIONS (5)
  - Bone disorder [None]
  - Multiple injuries [None]
  - Pain [None]
  - Emotional distress [None]
  - Femur fracture [None]
